FAERS Safety Report 15835706 (Version 2)
Quarter: 2019Q1

REPORT INFORMATION
  Report Type: Spontaneous
  Country: JP (occurrence: JP)
  Receive Date: 20190117
  Receipt Date: 20190209
  Transmission Date: 20190417
  Serious: Yes (Hospitalization, Other)
  Sender: FDA-Public Use
  Company Number: JP-AMGEN-JPNSP2019007316

PATIENT
  Age: 71 Year
  Sex: Male

DRUGS (26)
  1. ONCOVIN [Concomitant]
     Active Substance: VINCRISTINE SULFATE
     Indication: DIFFUSE LARGE B-CELL LYMPHOMA
     Dosage: UNK
     Route: 041
  2. CALONAL [Concomitant]
     Active Substance: ACETAMINOPHEN
     Indication: PREMEDICATION
     Dosage: 500 MG, QD (AFTER LUNCH)
     Route: 048
     Dates: start: 20181220, end: 20181220
  3. BAKTAR [Concomitant]
     Active Substance: SULFAMETHOXAZOLE\TRIMETHOPRIM
     Indication: PROPHYLAXIS
     Dosage: 1 DF, QD (AFTER BREAKFAST)
     Route: 048
     Dates: start: 20181220
  4. POLARAMINE [Concomitant]
     Active Substance: DEXCHLORPHENIRAMINE MALEATE
     Indication: PRODUCT USED FOR UNKNOWN INDICATION
     Dosage: 5 MG
     Route: 041
     Dates: start: 20181220
  5. FUROSEMIDE. [Concomitant]
     Active Substance: FUROSEMIDE
     Indication: WEIGHT INCREASED
     Dosage: UNK
     Route: 042
  6. SOLU-CORTEF [Concomitant]
     Active Substance: HYDROCORTISONE SODIUM SUCCINATE
     Indication: PRODUCT USED FOR UNKNOWN INDICATION
     Dosage: 100 MG
     Route: 041
     Dates: start: 20181220
  7. G-LASTA [Suspect]
     Active Substance: PEGFILGRASTIM
     Indication: PRODUCT USED FOR UNKNOWN INDICATION
     Dosage: 3.6 MG, UNK
     Route: 058
     Dates: start: 20181225, end: 20181225
  8. PREDONINE [Concomitant]
     Active Substance: PREDNISOLONE
     Dosage: UNK (INJECTION)
     Route: 041
  9. ISOTONIC SODIUM CHLORIDE SOLUTION [Concomitant]
     Active Substance: SODIUM CHLORIDE
     Dosage: UNK
     Route: 030
  10. SOLU-CORTEF [Concomitant]
     Active Substance: HYDROCORTISONE SODIUM SUCCINATE
     Dosage: 100 MG, BID
     Route: 041
     Dates: start: 20190108
  11. SOLU-CORTEF [Concomitant]
     Active Substance: HYDROCORTISONE SODIUM SUCCINATE
     Dosage: 100 MG, QD
     Route: 041
     Dates: start: 20190115, end: 20190117
  12. HUMULIN R [Concomitant]
     Active Substance: INSULIN HUMAN
     Indication: PRODUCT USED FOR UNKNOWN INDICATION
     Dosage: UNK
     Route: 058
  13. YD SOLITA T NO.1 [Concomitant]
     Indication: PRODUCT USED FOR UNKNOWN INDICATION
     Dosage: UNK
     Route: 041
  14. ENDOXAN [Concomitant]
     Active Substance: CYCLOPHOSPHAMIDE
     Indication: DIFFUSE LARGE B-CELL LYMPHOMA
     Dosage: UNK
     Route: 041
  15. HEPARIN NA LOCK [Concomitant]
     Active Substance: HEPARIN SODIUM
     Indication: PRODUCT USED FOR UNKNOWN INDICATION
     Dosage: UNK
     Route: 041
  16. GRANISETRON [Concomitant]
     Active Substance: GRANISETRON
     Indication: PRODUCT USED FOR UNKNOWN INDICATION
     Dosage: UNK
     Route: 042
  17. DOXORUBICIN [Concomitant]
     Active Substance: DOXORUBICIN
     Indication: DIFFUSE LARGE B-CELL LYMPHOMA
     Dosage: UNK
     Route: 041
  18. POSTERISAN [Concomitant]
     Active Substance: LIDOCAINE
     Indication: HAEMORRHOIDS
     Dosage: UNK, PRN (ONCE A DAY)
     Route: 061
     Dates: start: 20181221
  19. NOVAMIN [Concomitant]
     Indication: PRODUCT USED FOR UNKNOWN INDICATION
     Dosage: UNK
     Route: 030
  20. ISOTONIC SODIUM CHLORIDE SOLUTION [Concomitant]
     Active Substance: SODIUM CHLORIDE
     Indication: PRODUCT USED FOR UNKNOWN INDICATION
     Dosage: UNK
     Route: 042
  21. LUNESTA [Concomitant]
     Active Substance: ESZOPICLONE
     Indication: INSOMNIA
     Dosage: UNK, PRN
     Route: 048
     Dates: start: 20181221
  22. RITUXAN [Concomitant]
     Active Substance: RITUXIMAB
     Indication: DIFFUSE LARGE B-CELL LYMPHOMA
     Dosage: 600 MG
     Route: 041
     Dates: start: 20181220
  23. PREDONINE [Concomitant]
     Active Substance: PREDNISOLONE
     Indication: DIFFUSE LARGE B-CELL LYMPHOMA
     Dosage: 60 MG, 0-40-20-0-0-0 (TABLET)
     Route: 048
     Dates: start: 20181222, end: 20181225
  24. LANSOPRAZOLE. [Concomitant]
     Active Substance: LANSOPRAZOLE
     Indication: PRODUCT USED FOR UNKNOWN INDICATION
     Dosage: 15 MG, QD (AFTER BREAKFAST)
     Route: 048
     Dates: start: 20181220
  25. LEVOFLOXACIN. [Concomitant]
     Active Substance: LEVOFLOXACIN
     Indication: PYREXIA
     Dosage: 500 MG, PRN (ONCE A DAY FEVER)
     Route: 048
     Dates: start: 20181228
  26. PRIMPERAN [Concomitant]
     Active Substance: METOCLOPRAMIDE HYDROCHLORIDE
     Indication: PRODUCT USED FOR UNKNOWN INDICATION
     Dosage: UNK
     Route: 041

REACTIONS (1)
  - Aortitis [Recovering/Resolving]

NARRATIVE: CASE EVENT DATE: 20190108
